FAERS Safety Report 7415111-6 (Version None)
Quarter: 2011Q2

REPORT INFORMATION
  Report Type: 
  Country: None (occurrence: None)
  Receive Date: 20110414
  Receipt Date: 20110331
  Transmission Date: 20111010
  Serious: Yes (Other)
  Sender: FDA-Public Use
  Company Number: PHEH2011US00464

PATIENT
  Sex: Female

DRUGS (2)
  1. ZELNORM [Suspect]
     Indication: IRRITABLE BOWEL SYNDROME
     Dosage: 18 MG DAILY
  2. OPIOIDS [Suspect]

REACTIONS (34)
  - MYOCARDIAL INFARCTION [None]
  - MUSCLE SPASMS [None]
  - FALL [None]
  - FACIAL BONES FRACTURE [None]
  - POST PROCEDURAL HAEMORRHAGE [None]
  - COMPLEX REGIONAL PAIN SYNDROME [None]
  - PERICARDIAL EFFUSION [None]
  - JAW FRACTURE [None]
  - NECK INJURY [None]
  - SINUS HEADACHE [None]
  - SPINAL CORD COMPRESSION [None]
  - HYPERHIDROSIS [None]
  - CHEST PAIN [None]
  - LOSS OF CONSCIOUSNESS [None]
  - OCCIPITAL NEURALGIA [None]
  - NEURALGIA [None]
  - URINARY RETENTION [None]
  - PAIN IN JAW [None]
  - CARDIOMEGALY [None]
  - HYPOAESTHESIA [None]
  - MUSCULAR WEAKNESS [None]
  - DYSPHAGIA [None]
  - BLOOD PRESSURE INCREASED [None]
  - CONSTIPATION [None]
  - HYPOAESTHESIA ORAL [None]
  - INTERVERTEBRAL DISC DEGENERATION [None]
  - PILOERECTION [None]
  - INTERVERTEBRAL DISC PROTRUSION [None]
  - PAIN [None]
  - CONVULSION [None]
  - FACE INJURY [None]
  - DYSAESTHESIA [None]
  - MYOFASCIAL PAIN SYNDROME [None]
  - INSOMNIA [None]
